FAERS Safety Report 5030833-2 (Version None)
Quarter: 2006Q2

REPORT INFORMATION
  Report Type: 
  Country: None (occurrence: None)
  Receive Date: 20060619
  Receipt Date: 20060608
  Transmission Date: 20061013
  Serious: Yes (Death)
  Sender: FDA-Public Use
  Company Number: CIP06001339

PATIENT
  Sex: Male

DRUGS (2)
  1. DANTRIUM [Suspect]
     Indication: SPASTIC PARALYSIS
     Dosage: 100 MG DAILY, ORAL
     Route: 048
     Dates: start: 20060511
  2. AMLODIPINE BESYLATE [Concomitant]

REACTIONS (1)
  - RESPIRATORY FAILURE [None]
